FAERS Safety Report 6186251-7 (Version None)
Quarter: 2009Q2

REPORT INFORMATION
  Report Type: 
  Country: None (occurrence: None)
  Receive Date: 20090511
  Receipt Date: 20090504
  Transmission Date: 20091009
  Serious: Yes (Hospitalization, Other)
  Sender: FDA-Public Use
  Company Number: PHHY2009DE16859

PATIENT
  Age: 44 Year
  Sex: Male
  Weight: 87.8 kg

DRUGS (12)
  1. MYFORTIC [Suspect]
     Indication: RENAL TRANSPLANT
     Dosage: 720 MG, BID
     Route: 048
     Dates: start: 20080601
  2. MYFORTIC [Suspect]
     Indication: PROPHYLAXIS AGAINST TRANSPLANT REJECTION
  3. PREDNISOLONE [Suspect]
     Dosage: 0062008
     Route: 048
  4. ESPA-LEPSIN [Suspect]
     Indication: PARTIAL SEIZURES
     Dosage: 400 MG, TID
     Route: 048
     Dates: end: 20081130
  5. FURORESE [Suspect]
     Indication: OEDEMA
     Dosage: 120 MG, QD
     Route: 048
  6. RAPAMUNE [Suspect]
     Indication: PROPHYLAXIS AGAINST TRANSPLANT REJECTION
     Dosage: UNK
     Route: 048
     Dates: start: 20080601, end: 20081114
  7. COTRIM [Concomitant]
     Indication: URINARY TRACT INFECTION
     Route: 048
  8. KEPPRA [Concomitant]
     Indication: PARTIAL SEIZURES
     Dosage: UNK
     Route: 048
     Dates: start: 20081113
  9. LOCOL [Concomitant]
     Indication: HYPERCHOLESTEROLAEMIA
     Route: 048
  10. MADOPAR [Concomitant]
     Indication: RESTLESS LEGS SYNDROME
     Route: 048
  11. NEBIVOLOL [Concomitant]
     Indication: RENAL HYPERTENSION
     Route: 048
  12. RAMIPRIL [Concomitant]
     Indication: RENAL HYPERTENSION
     Route: 048

REACTIONS (4)
  - C-REACTIVE PROTEIN INCREASED [None]
  - DIABETES MELLITUS [None]
  - HYPERLIPIDAEMIA [None]
  - WEIGHT INCREASED [None]
